FAERS Safety Report 9473498 (Version 2)
Quarter: 2013Q3

REPORT INFORMATION
  Report Type: Spontaneous
  Country: US (occurrence: US)
  Receive Date: 20130823
  Receipt Date: 20130823
  Transmission Date: 20140515
  Serious: No
  Sender: FDA-Public Use
  Company Number: US-GALDERMA-US13000354

PATIENT
  Age: 60 Year
  Sex: Female

DRUGS (11)
  1. METROGEL (METRONIDAZOLE) GEL, 1% [Suspect]
     Indication: ROSACEA
     Route: 061
     Dates: start: 201208, end: 201212
  2. METROGEL (METRONIDAZOLE) GEL, 1% [Suspect]
     Route: 061
     Dates: start: 20130201, end: 201302
  3. METROGEL (METRONIDAZOLE) GEL, 1% [Suspect]
     Route: 061
     Dates: start: 201303
  4. SIMVASTATIN [Concomitant]
     Indication: HYPERCHOLESTEROLAEMIA
  5. LISINOPRIL [Concomitant]
     Indication: HYPERTENSION
  6. AMLODIPINE [Concomitant]
     Indication: HYPERTENSION
  7. RENOVA [Concomitant]
     Dates: start: 2010
  8. VITAMIN C [Concomitant]
  9. MULTIVITAMIN [Concomitant]
  10. COLLAGEN C [Concomitant]
  11. SEVERAL COSMETICS [Concomitant]
     Indication: THERAPEUTIC SKIN CARE TOPICAL

REACTIONS (4)
  - Lacrimation increased [Recovered/Resolved]
  - Skin irritation [Recovered/Resolved]
  - Drug ineffective [Not Recovered/Not Resolved]
  - Off label use [Unknown]
